FAERS Safety Report 8621030-X (Version None)
Quarter: 2012Q3

REPORT INFORMATION
  Report Type: 
  Country: None (occurrence: None)
  Receive Date: 20120824
  Receipt Date: 20120815
  Transmission Date: 20120928
  Serious: Yes (Death, Hospitalization, Disabling, Other)
  Sender: FDA-Public Use
  Company Number: US-009507513-1201USA01016

PATIENT

DRUGS (4)
  1. FOSAMAX [Suspect]
     Route: 048
     Dates: start: 20080310
  2. FOSAMAX [Suspect]
     Route: 048
     Dates: end: 20100705
  3. FOSAMAX [Suspect]
     Indication: OSTEOPOROSIS
     Dosage: 70 MG, QW
     Route: 048
     Dates: start: 20060114, end: 20101101
  4. CERTAGEN [Concomitant]
     Dates: start: 20060908, end: 20090216

REACTIONS (19)
  - CARDIO-RESPIRATORY ARREST [None]
  - FAILURE TO THRIVE [None]
  - HYPERLIPIDAEMIA [None]
  - ATELECTASIS [None]
  - CELLULITIS [None]
  - FALL [None]
  - CARDIAC FAILURE CONGESTIVE [None]
  - STAPHYLOCOCCAL ABSCESS [None]
  - FEMUR FRACTURE [None]
  - GASTROOESOPHAGEAL REFLUX DISEASE [None]
  - PLEURAL EFFUSION [None]
  - ARRHYTHMIA [None]
  - CORONARY ARTERY DISEASE [None]
  - PNEUMONIA [None]
  - ABSCESS LIMB [None]
  - PROTEUS TEST POSITIVE [None]
  - CLOSTRIDIAL INFECTION [None]
  - THROMBOSIS [None]
  - FOOT FRACTURE [None]
